APPROVED DRUG PRODUCT: TOPIRAMATE
Active Ingredient: TOPIRAMATE
Strength: 50MG
Dosage Form/Route: CAPSULE, EXTENDED RELEASE;ORAL
Application: A205976 | Product #003 | TE Code: AB1
Applicant: PH HEALTH LTD
Approved: May 4, 2023 | RLD: No | RS: No | Type: RX